FAERS Safety Report 9983364 (Version 1)
Quarter: 2014Q1

REPORT INFORMATION
  Report Type: Spontaneous
  Country: US (occurrence: US)
  Receive Date: 20140307
  Receipt Date: 20140307
  Transmission Date: 20141002
  Serious: Yes (Other)
  Sender: FDA-Public Use
  Company Number: US-SHIRE-US201400188

PATIENT
  Sex: 0

DRUGS (1)
  1. LIALDA [Suspect]
     Indication: PRODUCT USED FOR UNKNOWN INDICATION
     Dosage: UNK, 2X/DAY:BID
     Route: 048

REACTIONS (2)
  - Eosinophilic pneumonia [Unknown]
  - Drug prescribing error [Recovered/Resolved]
